FAERS Safety Report 16263976 (Version 8)
Quarter: 2020Q1

REPORT INFORMATION
  Report Type: Spontaneous
  Country: BR (occurrence: BR)
  Receive Date: 20190502
  Receipt Date: 20200116
  Transmission Date: 20200409
  Serious: Yes (Hospitalization, Other)
  Sender: FDA-Public Use
  Company Number: BR-GLAXOSMITHKLINE-BR2019GSK076118

PATIENT
  Age: 43 Year
  Sex: Female
  Weight: 65 kg

DRUGS (1)
  1. NUCALA [Suspect]
     Active Substance: MEPOLIZUMAB
     Indication: ASTHMA
     Dosage: 100 MG, UNK
     Dates: start: 20190122

REACTIONS (11)
  - Pneumonia [Unknown]
  - Blood pressure increased [Unknown]
  - Therapy cessation [Unknown]
  - Drug ineffective [Unknown]
  - Dyspnoea [Unknown]
  - Asthma [Unknown]
  - Heart rate increased [Unknown]
  - Incorrect product administration duration [Unknown]
  - Tachycardia [Unknown]
  - Asthmatic crisis [Unknown]
  - Hypertension [Unknown]

NARRATIVE: CASE EVENT DATE: 201909
